FAERS Safety Report 23755332 (Version 1)
Quarter: 2024Q2

REPORT INFORMATION
  Report Type: Spontaneous
  Country: GB (occurrence: GB)
  Receive Date: 20240418
  Receipt Date: 20240418
  Transmission Date: 20240716
  Serious: Yes (Other)
  Sender: FDA-Public Use
  Company Number: GB-GLAXOSMITHKLINE-GB2024EME048028

PATIENT

DRUGS (1)
  1. NIRAPARIB [Suspect]
     Active Substance: NIRAPARIB
     Indication: Fallopian tube cancer stage IV
     Dosage: UNK
     Dates: start: 202203

REACTIONS (5)
  - Recurrent cancer [Unknown]
  - Pulmonary mass [Recovering/Resolving]
  - Lymphadenopathy [Unknown]
  - Lung opacity [Recovering/Resolving]
  - Carbohydrate antigen 125 increased [Unknown]
